FAERS Safety Report 9069742 (Version 1)
Quarter: 2013Q1

REPORT INFORMATION
  Report Type: Spontaneous
  Country: FR (occurrence: FR)
  Receive Date: 20130215
  Receipt Date: 20130215
  Transmission Date: 20140127
  Serious: Yes (Hospitalization)
  Sender: FDA-Public Use
  Company Number: FR-ABBOTT-13P-056-1048757-00

PATIENT
  Age: 43 None
  Sex: Male

DRUGS (2)
  1. HUMIRA [Suspect]
     Indication: CROHN^S DISEASE
     Route: 058
     Dates: start: 201011, end: 20110813
  2. DEPAMIDE [Concomitant]
     Indication: PRODUCT USED FOR UNKNOWN INDICATION

REACTIONS (4)
  - Pustular psoriasis [Recovered/Resolved]
  - Pustular psoriasis [Recovered/Resolved]
  - Pustular psoriasis [Recovered/Resolved]
  - Skin infection [Unknown]
